FAERS Safety Report 21197364 (Version 1)
Quarter: 2022Q3

REPORT INFORMATION
  Report Type: Spontaneous
  Country: US (occurrence: US)
  Receive Date: 20220810
  Receipt Date: 20220810
  Transmission Date: 20221027
  Serious: No
  Sender: FDA-Public Use
  Company Number: US-SA-SAC20220804001948

PATIENT
  Age: 27 Year
  Sex: Male

DRUGS (5)
  1. DUPIXENT [Suspect]
     Active Substance: DUPILUMAB
     Indication: Dermatitis atopic
     Dosage: UNK , QOW
     Route: 058
     Dates: start: 20220308
  2. LAMOTRIGINE [Concomitant]
     Active Substance: LAMOTRIGINE
     Dosage: UNK
  3. BUPROPION [Concomitant]
     Active Substance: BUPROPION
     Dosage: UNK
  4. FEXOFENADINE [Concomitant]
     Active Substance: FEXOFENADINE HYDROCHLORIDE
     Dosage: UNK
  5. FLUVOXAMINE [Concomitant]
     Active Substance: FLUVOXAMINE
     Dosage: UNK

REACTIONS (2)
  - Injection site erythema [Unknown]
  - Injection site bruising [Unknown]

NARRATIVE: CASE EVENT DATE: 20220725
